FAERS Safety Report 15935979 (Version 1)
Quarter: 2019Q1

REPORT INFORMATION
  Report Type: Report from Study
  Country: DE (occurrence: DE)
  Receive Date: 20190208
  Receipt Date: 20190208
  Transmission Date: 20190417
  Serious: Yes (Other)
  Sender: FDA-Public Use
  Company Number: DE-ROCHE-2259252

PATIENT
  Sex: Male
  Weight: 115 kg

DRUGS (14)
  1. RANIBIZUMAB. [Suspect]
     Active Substance: RANIBIZUMAB
     Dosage: 0.5 MG,RIGHT EYE
     Route: 031
     Dates: start: 20180226
  2. RANIBIZUMAB. [Suspect]
     Active Substance: RANIBIZUMAB
     Dosage: 0.5 MG,RIGHT EYE
     Route: 031
     Dates: start: 20171123
  3. RANIBIZUMAB. [Suspect]
     Active Substance: RANIBIZUMAB
     Dosage: 0.5 MG,RIGHT EYE
     Route: 031
     Dates: start: 20171221
  4. RANIBIZUMAB. [Suspect]
     Active Substance: RANIBIZUMAB
     Dosage: 0.5 MG, 1X (PRE-FILLED SYRINGE)
     Route: 031
     Dates: start: 20180627
  5. RANIBIZUMAB. [Suspect]
     Active Substance: RANIBIZUMAB
     Dosage: 0.5 MG, 1X (PRE-FILLED SYRINGE)
     Route: 031
     Dates: start: 20181023
  6. RANIBIZUMAB. [Suspect]
     Active Substance: RANIBIZUMAB
     Dosage: 0.5 MG, 1X (PRE-FILLED SYRINGE)
     Route: 031
     Dates: start: 20180920, end: 20180920
  7. RANIBIZUMAB. [Suspect]
     Active Substance: RANIBIZUMAB
     Indication: NEOVASCULAR AGE-RELATED MACULAR DEGENERATION
     Dosage: 0.5 MG,RIGHT EYE
     Route: 031
     Dates: start: 20170828
  8. RANIBIZUMAB. [Suspect]
     Active Substance: RANIBIZUMAB
     Dosage: 0.5 MG, 1X (PRE-FILLED SYRINGE)
     Route: 031
     Dates: start: 20180821
  9. RANIBIZUMAB. [Suspect]
     Active Substance: RANIBIZUMAB
     Dosage: 0.5 MG,RIGHT EYE
     Route: 031
     Dates: start: 20180129
  10. RANIBIZUMAB. [Suspect]
     Active Substance: RANIBIZUMAB
     Dosage: 0.5 MG,RIGHT EYE
     Route: 031
     Dates: start: 20180328
  11. RANIBIZUMAB. [Suspect]
     Active Substance: RANIBIZUMAB
     Dosage: 0.5 MG, 1X RIGHT EYE (PRE-FILLED SYRINGE)
     Route: 031
     Dates: start: 20180425, end: 20180425
  12. RANIBIZUMAB. [Suspect]
     Active Substance: RANIBIZUMAB
     Dosage: 0.5 MG, 1X (PRE-FILLED SYRINGE)
     Route: 031
     Dates: start: 20180724
  13. RANIBIZUMAB. [Suspect]
     Active Substance: RANIBIZUMAB
     Dosage: 0.5 MG,RIGHT EYE
     Route: 031
     Dates: start: 20170927
  14. RANIBIZUMAB. [Suspect]
     Active Substance: RANIBIZUMAB
     Dosage: 0.5 MG,RIGHT EYE
     Route: 031
     Dates: start: 20171025

REACTIONS (2)
  - Detachment of retinal pigment epithelium [Not Recovered/Not Resolved]
  - Retinal oedema [Recovered/Resolved]

NARRATIVE: CASE EVENT DATE: 20180528
